FAERS Safety Report 9665232 (Version 2)
Quarter: 2013Q4

REPORT INFORMATION
  Report Type: Spontaneous
  Country: DE (occurrence: DE)
  Receive Date: 20131103
  Receipt Date: 20131110
  Transmission Date: 20140711
  Serious: Yes (Hospitalization, Congenital Anomaly, Other)
  Sender: FDA-Public Use
  Company Number: DE-US-EMD SERONO, INC.-7247060

PATIENT
  Age: 1 Day
  Sex: Male
  Weight: 1.32 kg

DRUGS (1)
  1. REBIF [Suspect]
     Indication: MULTIPLE SCLEROSIS
     Route: 064

REACTIONS (6)
  - Congenital inguinal hernia [Unknown]
  - Klinefelter^s syndrome [Not Recovered/Not Resolved]
  - Dysmorphism [Not Recovered/Not Resolved]
  - Hydrocele [Unknown]
  - Agitation neonatal [Recovered/Resolved]
  - Premature baby [Recovering/Resolving]
